FAERS Safety Report 9116251 (Version 1)
Quarter: 2013Q1

REPORT INFORMATION
  Report Type: Report from Study
  Country: GB (occurrence: GB)
  Receive Date: 20130225
  Receipt Date: 20130225
  Transmission Date: 20140127
  Serious: Yes (Death, Hospitalization)
  Sender: FDA-Public Use
  Company Number: GB-JNJFOC-20130211367

PATIENT
  Age: 29 Year
  Sex: Male
  Weight: 114.6 kg

DRUGS (13)
  1. REMICADE [Suspect]
     Indication: PSORIASIS
     Route: 042
     Dates: start: 20110817, end: 20120118
  2. TACROLIMUS [Suspect]
     Indication: PRODUCT USED FOR UNKNOWN INDICATION
  3. OMEPRAZOLE [Concomitant]
     Dates: start: 20120125
  4. AMLODIPINE [Concomitant]
     Dates: start: 20120125
  5. BISOPROLOL [Concomitant]
     Dosage: AT NIGHT
     Dates: start: 20120125
  6. TRIMEPRAZINE [Concomitant]
     Dates: start: 20120125
  7. HYDROXYZINE [Concomitant]
     Dosage: AT NIGHT
     Dates: start: 20120411
  8. CHLORPHENAMINE [Concomitant]
     Dates: start: 20120411
  9. FLUOXETINE [Concomitant]
     Dates: start: 20120125
  10. ACYCLOVIR [Concomitant]
  11. CLARITHROMYCIN [Concomitant]
  12. DEPTROPINE [Concomitant]
  13. POSACONAZOLE [Concomitant]

REACTIONS (8)
  - Death [Fatal]
  - Transplant [Unknown]
  - Acute myeloid leukaemia [Unknown]
  - Pneumonitis [Unknown]
  - Mucosal inflammation [Unknown]
  - Hypoxia [Unknown]
  - Enterococcal infection [Unknown]
  - Eosinophilia [Unknown]
